FAERS Safety Report 5921388-6 (Version None)
Quarter: 2008Q4

REPORT INFORMATION
  Report Type: 
  Country: None (occurrence: None)
  Receive Date: 20081016
  Receipt Date: 20081008
  Transmission Date: 20090506
  Serious: Yes (Life-Threatening, Hospitalization)
  Sender: FDA-Public Use
  Company Number: GB-BAUSCH-2008BL004307

PATIENT
  Age: 77 Year
  Sex: Male

DRUGS (14)
  1. PREDNISOLONE [Suspect]
     Route: 048
     Dates: start: 20080902
  2. AMOXICILLIN [Suspect]
     Route: 048
     Dates: start: 20080902, end: 20080902
  3. ADCAL-D3 [Concomitant]
  4. ALLOPURINOL [Concomitant]
     Route: 048
  5. ASPIRIN [Concomitant]
  6. FELODIPINE [Concomitant]
  7. FUROSEMIDE [Concomitant]
  8. GLUCOSAMINE [Concomitant]
  9. NICORANDIL [Concomitant]
  10. OMEPRAZOLE [Concomitant]
     Route: 048
  11. PRAVASTATIN [Concomitant]
     Route: 048
  12. QUININE SULPHATE [Concomitant]
  13. RAMIPRIL [Concomitant]
  14. SENNA [Concomitant]

REACTIONS (2)
  - OROPHARYNGEAL SWELLING [None]
  - PRURITUS GENERALISED [None]
